FAERS Safety Report 7073367-6 (Version None)
Quarter: 2010Q4

REPORT INFORMATION
  Report Type: 
  Country: None (occurrence: None)
  Receive Date: 20101029
  Receipt Date: 20101018
  Transmission Date: 20110411
  Serious: Yes (Other)
  Sender: FDA-Public Use
  Company Number: DE-ELI_LILLY_AND_COMPANY-DE201010004078

PATIENT
  Age: 58 Year
  Sex: Female
  Weight: 63 kg

DRUGS (1)
  1. CYMBALTA [Suspect]
     Indication: DEPRESSION
     Dosage: 90 MG, DAILY (1/D)
     Route: 048
     Dates: start: 20100824, end: 20100922

REACTIONS (2)
  - LICHENOID KERATOSIS [None]
  - PURPURA [None]
